FAERS Safety Report 6780390-5 (Version None)
Quarter: 2010Q2

REPORT INFORMATION
  Report Type: 
  Country: None (occurrence: None)
  Receive Date: 20100618
  Receipt Date: 20100611
  Transmission Date: 20101027
  Serious: Yes (Hospitalization, Other)
  Sender: FDA-Public Use
  Company Number: GR-AMGEN-QUU415379

PATIENT
  Age: 67 Year
  Sex: Male

DRUGS (3)
  1. NPLATE [Suspect]
     Indication: IDIOPATHIC THROMBOCYTOPENIC PURPURA
     Dates: start: 20100505, end: 20100519
  2. UNSPECIFIED STEROIDS [Concomitant]
  3. ACTONEL [Concomitant]

REACTIONS (3)
  - PLATELET COUNT INCREASED [None]
  - PULMONARY EMBOLISM [None]
  - THERAPEUTIC RESPONSE DECREASED [None]
